FAERS Safety Report 19421342 (Version 1)
Quarter: 2021Q2

REPORT INFORMATION
  Report Type: Spontaneous
  Country: CN (occurrence: CN)
  Receive Date: 20210616
  Receipt Date: 20210616
  Transmission Date: 20210717
  Serious: Yes (Other)
  Sender: FDA-Public Use
  Company Number: CN-JNJFOC-20210630440

PATIENT
  Age: 7 Month
  Sex: Male
  Weight: 8 kg

DRUGS (5)
  1. CETIRIZINE HYDROCHLORIDE. [Suspect]
     Active Substance: CETIRIZINE HYDROCHLORIDE
     Indication: HYPERSENSITIVITY
     Dosage: 0.25 MILLILITER, UNK
     Route: 048
  2. AUGMENTIN [Concomitant]
     Active Substance: AMOXICILLIN\CLAVULANATE POTASSIUM
     Indication: PRODUCT USED FOR UNKNOWN INDICATION
     Dosage: UNK
     Route: 065
  3. CEFTIZOXIME SODIUM [Concomitant]
     Active Substance: CEFTIZOXIME SODIUM
     Indication: PRODUCT USED FOR UNKNOWN INDICATION
     Dosage: UNK
     Route: 065
  4. PIPERACILLIN AND TAZOBACTAM [Suspect]
     Active Substance: PIPERACILLIN SODIUM\TAZOBACTAM SODIUM
     Indication: INFECTION
     Dosage: 0.720 GRAM, ONCE DAILY (QD)
     Route: 041
     Dates: start: 20210508, end: 20210508
  5. CALCIUM GLUCONATE AND SODIUM CHLORIDE [Concomitant]
     Indication: HYPERSENSITIVITY
     Dosage: UNK
     Route: 065

REACTIONS (3)
  - Rash [Recovered/Resolved]
  - Restlessness [Unknown]
  - Cyanosis [Recovered/Resolved]

NARRATIVE: CASE EVENT DATE: 20210508
